FAERS Safety Report 8198177-8 (Version None)
Quarter: 2012Q1

REPORT INFORMATION
  Report Type: 
  Country: None (occurrence: None)
  Receive Date: 20120309
  Receipt Date: 20111205
  Transmission Date: 20120608
  Serious: No
  Sender: FDA-Public Use
  Company Number: US-AMGEN-USASP2011064710

PATIENT
  Age: 61 Year
  Sex: Female

DRUGS (6)
  1. CALCIUM WITH VITAMIN D3 [Concomitant]
     Dosage: 1 MG, UNK
  2. SPIRONOLACTONE [Concomitant]
     Indication: HYPERTENSION
     Dosage: 1 MG, UNK
  3. VITAMIN D [Concomitant]
     Dosage: 1 IU, UNK
  4. CYMBALTA [Concomitant]
     Dosage: UNK
  5. LEVOTHYROXINE SODIUM [Concomitant]
     Dosage: 1 MG, UNK
  6. PROLIA [Suspect]
     Indication: OSTEOPOROSIS POSTMENOPAUSAL
     Dosage: 60 MG, Q6MO
     Dates: start: 20110601

REACTIONS (6)
  - HEADACHE [None]
  - DIZZINESS [None]
  - PRURITUS GENERALISED [None]
  - BACK PAIN [None]
  - GENERALISED ERYTHEMA [None]
  - VISUAL IMPAIRMENT [None]
